FAERS Safety Report 19874026 (Version 1)
Quarter: 2021Q3

REPORT INFORMATION
  Report Type: Spontaneous
  Country: US (occurrence: US)
  Receive Date: 20210922
  Receipt Date: 20210922
  Transmission Date: 20211014
  Serious: No
  Sender: FDA-Public Use
  Company Number: US-B.I. PHARMACEUTICALS,INC./RIDGEFIELD-2021-BI-128512

PATIENT
  Age: 81 Year
  Sex: Female

DRUGS (5)
  1. DULOXETINE. [Concomitant]
     Active Substance: DULOXETINE
     Indication: FIBROMYALGIA
     Dosage: 30MG DAILY
  2. METFORMIN [Concomitant]
     Active Substance: METFORMIN HYDROCHLORIDE
     Indication: TYPE 2 DIABETES MELLITUS
     Dosage: 500MG BID
  3. METOPROLOL. [Concomitant]
     Active Substance: METOPROLOL
     Indication: CARDIOVASCULAR DISORDER
     Dosage: 25MG DAILY
  4. RAMIPRIL. [Concomitant]
     Active Substance: RAMIPRIL
     Indication: CARDIOVASCULAR DISORDER
     Dosage: 5MG  DAILY
  5. JARDIANCE [Suspect]
     Active Substance: EMPAGLIFLOZIN
     Indication: TYPE 2 DIABETES MELLITUS
     Dosage: 10MG DAILY
     Dates: start: 20210913

REACTIONS (2)
  - Vulvovaginal pruritus [Not Recovered/Not Resolved]
  - Dysuria [Not Recovered/Not Resolved]

NARRATIVE: CASE EVENT DATE: 20210915
